FAERS Safety Report 12661822 (Version 3)
Quarter: 2016Q3

REPORT INFORMATION
  Report Type: Spontaneous
  Country: ES (occurrence: ES)
  Receive Date: 20160817
  Receipt Date: 20160826
  Transmission Date: 20161109
  Serious: Yes (Other)
  Sender: FDA-Public Use
  Company Number: ES-009507513-1608ESP006548

PATIENT
  Age: 54 Year
  Sex: Male
  Weight: 87 kg

DRUGS (6)
  1. MICARDIS [Concomitant]
     Active Substance: TELMISARTAN
     Indication: HYPERTENSION
     Dosage: 80MG ONCE PER DAY
     Dates: start: 2006
  2. AERIUS [Suspect]
     Active Substance: DESLORATADINE
     Indication: HYPERTENSION
  3. HIGROTONA [Concomitant]
     Active Substance: CHLORTHALIDONE
     Indication: HYPERTENSION
     Dosage: 50 MG PER DAY
     Dates: start: 2016
  4. AERIUS [Suspect]
     Active Substance: DESLORATADINE
     Indication: HYPERSENSITIVITY
     Dosage: 10 MG, BID
     Route: 048
     Dates: start: 20160519, end: 20160525
  5. LACEROL [Concomitant]
     Dosage: 300 MG, QD
     Dates: start: 2006
  6. CARDYL [Concomitant]
     Active Substance: ATORVASTATIN CALCIUM
     Indication: BLOOD CHOLESTEROL INCREASED
     Dosage: 40MG PER DAY
     Dates: start: 2006

REACTIONS (1)
  - Respiratory distress [Not Recovered/Not Resolved]

NARRATIVE: CASE EVENT DATE: 201605
